FAERS Safety Report 8628091 (Version 3)
Quarter: 2013Q1

REPORT INFORMATION
  Report Type: Spontaneous
  Country: US (occurrence: US)
  Receive Date: 20120621
  Receipt Date: 20130328
  Transmission Date: 20140127
  Serious: Yes (Death)
  Sender: FDA-Public Use
  Company Number: US-JNJFOC-20120608205

PATIENT
  Age: 4 Year
  Sex: Female

DRUGS (2)
  1. BENADRYL [Suspect]
     Indication: SLEEP DISORDER THERAPY
     Route: 065
  2. TUSSIONEX [Interacting]
     Indication: CROUP INFECTIOUS
     Dosage: HALF TEASPOON, ONCE A DAY
     Route: 065

REACTIONS (4)
  - Toxicity to various agents [Fatal]
  - Drug interaction [Fatal]
  - Off label use [Fatal]
  - Wrong drug administered [Fatal]
